FAERS Safety Report 8177219-X (Version None)
Quarter: 2012Q1

REPORT INFORMATION
  Report Type: 
  Country: None (occurrence: None)
  Receive Date: 20120124
  Receipt Date: 20111003
  Transmission Date: 20120608
  Serious: No
  Sender: FDA-Public Use
  Company Number: US-005931

PATIENT
  Age: 66 Year
  Sex: Male

DRUGS (5)
  1. MULTI-VITAMINS [Concomitant]
  2. ZOMETA [Concomitant]
  3. FLOMAX [Concomitant]
  4. DOXYCYCLINE [Concomitant]
  5. DEGARELIX 240 MG [Suspect]
     Indication: PROSTATE CANCER
     Dosage: (240 MG SUBCUTANEOUS)
     Route: 058
     Dates: start: 20110628, end: 20110628

REACTIONS (2)
  - RASH PRURITIC [None]
  - RASH [None]
